FAERS Safety Report 7436739-3 (Version None)
Quarter: 2011Q2

REPORT INFORMATION
  Report Type: 
  Country: None (occurrence: None)
  Receive Date: 20110426
  Receipt Date: 20110415
  Transmission Date: 20111010
  Serious: Yes (Hospitalization)
  Sender: FDA-Public Use
  Company Number: FR-ELI_LILLY_AND_COMPANY-FR201104005034

PATIENT
  Age: 72 Year
  Sex: Male

DRUGS (7)
  1. CYMBALTA [Suspect]
     Indication: DEPRESSION
     Dosage: 90 MG, QD
     Dates: start: 20080101
  2. NEXIUM [Concomitant]
     Dosage: UNK
     Route: 048
  3. COVERSYL [Concomitant]
     Route: 048
  4. PREVISCAN [Concomitant]
     Route: 048
  5. CRESTOR [Concomitant]
     Route: 048
  6. KARDEGIC [Concomitant]
     Dosage: UNK
     Route: 048
  7. CORDARONE [Concomitant]
     Dosage: 200 DF, UNK
     Route: 048

REACTIONS (3)
  - HYPOTENSION [None]
  - LOSS OF CONSCIOUSNESS [None]
  - VERTIGO [None]
